FAERS Safety Report 11246611 (Version 1)
Quarter: 2015Q3

REPORT INFORMATION
  Report Type: Spontaneous
  Country: US (occurrence: None)
  Receive Date: 20150706
  Receipt Date: 20150706
  Transmission Date: 20151125
  Serious: Yes (Other)
  Sender: FDA-Public Use
  Company Number: None

PATIENT
  Age: 71 Year
  Sex: Female
  Weight: 51.71 kg

DRUGS (10)
  1. MIRALAX [Concomitant]
     Active Substance: POLYETHYLENE GLYCOL 3350
  2. ZYRTEK [Concomitant]
     Active Substance: CETIRIZINE HYDROCHLORIDE
  3. BIOTIN [Concomitant]
     Active Substance: BIOTIN
  4. NITROFURANTOIN. [Concomitant]
     Active Substance: NITROFURANTOIN
  5. HYDROCHLOROTHIAZIDE 12.5 MYL - FROM WALMART [Suspect]
     Active Substance: HYDROCHLOROTHIAZIDE
     Indication: HYPERTENSION
     Dosage: 1 PERDAY ONCE DAILY ORAL
     Route: 048
     Dates: start: 20150413, end: 20150704
  6. LISINOPRIL. [Concomitant]
     Active Substance: LISINOPRIL
  7. TRAMADOL. [Concomitant]
     Active Substance: TRAMADOL
  8. LIDODERM [Concomitant]
     Active Substance: LIDOCAINE
  9. VITAMIN B12 [Concomitant]
     Active Substance: CYANOCOBALAMIN
  10. STOOL SOFTENER [Concomitant]
     Active Substance: DOCUSATE CALCIUM

REACTIONS (23)
  - Peripheral swelling [None]
  - Fatigue [None]
  - Somnolence [None]
  - Abdominal distension [None]
  - Visual impairment [None]
  - Hypotension [None]
  - Dizziness [None]
  - Photophobia [None]
  - Swelling [None]
  - Joint swelling [None]
  - Heart rate increased [None]
  - Melaena [None]
  - Cold sweat [None]
  - Dry mouth [None]
  - Asthenia [None]
  - Muscular weakness [None]
  - Vision blurred [None]
  - Formication [None]
  - Weight increased [None]
  - Hyperhidrosis [None]
  - Dyspnoea [None]
  - Burning sensation [None]
  - Constipation [None]

NARRATIVE: CASE EVENT DATE: 20150602
